FAERS Safety Report 4724362-0 (Version None)
Quarter: 2005Q3

REPORT INFORMATION
  Report Type: 
  Country: None (occurrence: None)
  Receive Date: 20050720
  Receipt Date: 20050720
  Transmission Date: 20060218
  Serious: Yes (Other)
  Sender: FDA-Public Use
  Company Number: None

PATIENT
  Age: 56 Year
  Sex: Male
  Weight: 90.9 kg

DRUGS (7)
  1. PHYTONADIONE [Suspect]
     Indication: PROTHROMBIN TIME PROLONGED
     Dosage: 10 MG IM X 3 DAYS
     Route: 030
  2. DIAZEPAM [Concomitant]
  3. MVI W/MIMERALS [Concomitant]
  4. THIOMINE [Concomitant]
  5. FOLIC ACID [Concomitant]
  6. IBUPROFEN [Concomitant]
  7. MAGNESIUM OXIDE [Concomitant]

REACTIONS (4)
  - BODY TEMPERATURE INCREASED [None]
  - CHEST PAIN [None]
  - FLUSHING [None]
  - RESPIRATORY RATE INCREASED [None]
